FAERS Safety Report 7074829-8 (Version None)
Quarter: 2010Q4

REPORT INFORMATION
  Report Type: 
  Country: None (occurrence: None)
  Receive Date: 20101029
  Receipt Date: 20101022
  Transmission Date: 20110411
  Serious: Yes (Hospitalization)
  Sender: FDA-Public Use
  Company Number: AT-B.I. PHARMACEUTICALS,INC./RIDGEFIELD-2010-AP-00518AP

PATIENT
  Sex: Male
  Weight: 122.3 kg

DRUGS (13)
  1. PRADAXA [Suspect]
     Indication: THROMBOSIS PROPHYLAXIS
     Dosage: 220 MG
     Route: 048
     Dates: start: 20101002, end: 20101007
  2. ZOVIRAX [Suspect]
     Dosage: 750 MG
     Route: 042
     Dates: start: 20101006, end: 20101008
  3. LOVENOX [Concomitant]
     Indication: THROMBOSIS PROPHYLAXIS
     Dosage: 40 MG
     Route: 058
     Dates: start: 20100930, end: 20101001
  4. METOPROLOL TARTRATE [Concomitant]
     Indication: HYPERTENSION
     Dosage: 95 MG
     Route: 048
  5. LISINOPRIL [Concomitant]
     Indication: HYPERTENSION
     Dosage: 10 MG
     Route: 048
  6. AMARYL [Concomitant]
     Indication: TYPE 2 DIABETES MELLITUS
     Dosage: 12 MG
     Route: 048
  7. SIMVASTATIN [Concomitant]
     Indication: HYPERLIPIDAEMIA
     Dosage: 20 MG
     Route: 048
  8. JANUVIA [Concomitant]
     Indication: TYPE 2 DIABETES MELLITUS
     Dosage: 80 MG
     Route: 048
  9. DIABETEX [Concomitant]
     Indication: TYPE 2 DIABETES MELLITUS
     Dosage: 3000 MG
     Route: 048
     Dates: start: 20101002
  10. KEFZOL [Concomitant]
     Indication: INFECTION PROPHYLAXIS
     Dosage: 6 G
     Route: 042
     Dates: start: 20101001, end: 20101004
  11. TRAMADOL HCL [Concomitant]
     Indication: PAIN PROPHYLAXIS
     Dosage: 600 MG
     Route: 042
     Dates: start: 20101001, end: 20101001
  12. ZOFRAN [Concomitant]
     Indication: PROPHYLAXIS OF NAUSEA AND VOMITING
     Dosage: 8 MG
     Route: 042
     Dates: start: 20101001, end: 20101001
  13. NOVALGIN [Concomitant]
     Indication: PAIN PROPHYLAXIS
     Dosage: 4 G
     Route: 042
     Dates: start: 20101001, end: 20101001

REACTIONS (3)
  - HAEMORRHAGE [None]
  - IMPAIRED HEALING [None]
  - RENAL FAILURE [None]
